FAERS Safety Report 10082917 (Version 1)
Quarter: 2014Q2

REPORT INFORMATION
  Report Type: Spontaneous
  Country: US (occurrence: US)
  Receive Date: 20140417
  Receipt Date: 20140417
  Transmission Date: 20141212
  Serious: Yes (Other)
  Sender: FDA-Public Use
  Company Number: US-PAR PHARMACEUTICAL, INC-2014SCPR008993

PATIENT
  Sex: 0

DRUGS (2)
  1. CLONAZEPAM [Suspect]
     Indication: VERTIGO
     Dosage: 2.5 MG, UNKNOWN
     Route: 065
  2. CLONAZEPAM [Suspect]
     Indication: AUTONOMIC NERVOUS SYSTEM IMBALANCE

REACTIONS (5)
  - Renal pain [Not Recovered/Not Resolved]
  - Urine ketone body present [Not Recovered/Not Resolved]
  - Urinary tract infection [Not Recovered/Not Resolved]
  - Off label use [Unknown]
  - Nausea [Not Recovered/Not Resolved]
